FAERS Safety Report 5099787-7 (Version None)
Quarter: 2006Q3

REPORT INFORMATION
  Report Type: 
  Country: None (occurrence: None)
  Receive Date: 20060908
  Receipt Date: 20060901
  Transmission Date: 20061208
  Serious: Yes (Other)
  Sender: FDA-Public Use
  Company Number: 2006PK01822

PATIENT
  Sex: Female

DRUGS (1)
  1. NOLVADEX [Suspect]
     Indication: BREAST CANCER

REACTIONS (3)
  - BOWMAN'S MEMBRANE DISORDER [None]
  - CORNEAL LESION [None]
  - PTERYGIUM [None]
